FAERS Safety Report 14314243 (Version 14)
Quarter: 2018Q4

REPORT INFORMATION
  Report Type: Spontaneous
  Country: DK (occurrence: DK)
  Receive Date: 20171221
  Receipt Date: 20181007
  Transmission Date: 20190204
  Serious: Yes (Death, Life-Threatening, Hospitalization, Other)
  Sender: FDA-Public Use
  Company Number: DK-BRISTOL-MYERS SQUIBB COMPANY-BMS-2017-115903

PATIENT
  Age: 83 Year
  Sex: Male

DRUGS (6)
  1. WARFARIN SODIUM. [Interacting]
     Active Substance: WARFARIN SODIUM
     Indication: ANTICOAGULANT THERAPY
     Route: 065
  2. PARACETAMOL [Interacting]
     Active Substance: ACETAMINOPHEN
     Indication: PRODUCT USED FOR UNKNOWN INDICATION
     Dosage: 4 G, QD
     Route: 048
  3. PARACETAMOL [Interacting]
     Active Substance: ACETAMINOPHEN
     Indication: BACK PAIN
     Dosage: 1 G, QD
     Route: 048
  4. WARFARIN SODIUM. [Suspect]
     Active Substance: WARFARIN SODIUM
     Indication: ATRIAL FIBRILLATION
     Dosage: 1 G, QD
     Route: 048
  5. MORPHINE SULFATE. [Suspect]
     Active Substance: MORPHINE SULFATE
     Indication: BACK PAIN
     Dosage: 30 MG, QD
     Route: 048
  6. DICLOFENAC                         /00372302/ [Suspect]
     Active Substance: DICLOFENAC
     Indication: BACK PAIN
     Dosage: RESCUE MEDIACTION
     Route: 048

REACTIONS (12)
  - Aphasia [Fatal]
  - Brain midline shift [Fatal]
  - Nervous system disorder [Fatal]
  - Labelled drug-drug interaction medication error [Fatal]
  - Unresponsive to stimuli [Fatal]
  - Muscular weakness [Fatal]
  - Coma [Fatal]
  - Asthenia [Fatal]
  - Cerebral haemorrhage [Fatal]
  - Hemianopia homonymous [Fatal]
  - International normalised ratio increased [Fatal]
  - Hemiparesis [Fatal]
